FAERS Safety Report 6209588-1 (Version None)
Quarter: 2009Q2

REPORT INFORMATION
  Report Type: 
  Country: None (occurrence: None)
  Receive Date: 20090601
  Receipt Date: 20090520
  Transmission Date: 20091009
  Serious: Yes (Other)
  Sender: FDA-Public Use
  Company Number: CA-JNJFOC-20081200169

PATIENT
  Sex: Female
  Weight: 65.5 kg

DRUGS (5)
  1. REMICADE [Suspect]
     Route: 042
  2. REMICADE [Suspect]
     Dosage: 5 INFUSIONS ON UNKNOWN DATES
     Route: 042
  3. REMICADE [Suspect]
     Indication: RHEUMATOID ARTHRITIS
     Route: 042
  4. HYDROXYCHLOROQUINE SULFATE [Concomitant]
     Route: 048
  5. LEFLUNOMIDE [Concomitant]
     Route: 048

REACTIONS (4)
  - CHILLS [None]
  - CYANOSIS [None]
  - INFUSION RELATED REACTION [None]
  - MORBID THOUGHTS [None]
